FAERS Safety Report 23495447 (Version 1)
Quarter: 2024Q1

REPORT INFORMATION
  Report Type: Spontaneous
  Country: US (occurrence: None)
  Receive Date: 20240207
  Receipt Date: 20240207
  Transmission Date: 20240410
  Serious: No
  Sender: FDA-Public Use
  Company Number: 2024A007905

PATIENT
  Sex: Female

DRUGS (2)
  1. TRUQAP [Suspect]
     Active Substance: CAPIVASERTIB
     Indication: Breast cancer metastatic
     Route: 048
  2. DEXAMETHASONE MOUTHWASH [Concomitant]
     Indication: Prophylaxis
     Route: 002

REACTIONS (1)
  - Rash [Recovering/Resolving]
